FAERS Safety Report 6788606-6 (Version None)
Quarter: 2010Q2

REPORT INFORMATION
  Report Type: 
  Country: None (occurrence: None)
  Receive Date: 20100623
  Receipt Date: 20080603
  Transmission Date: 20101027
  Serious: No
  Sender: FDA-Public Use
  Company Number: US-PFIZER INC-2008028979

PATIENT
  Sex: Male

DRUGS (2)
  1. XALATAN [Suspect]
  2. ALL OTHER THERAPEUTIC PRODUCTS [Concomitant]

REACTIONS (4)
  - DRY EYE [None]
  - EYE ALLERGY [None]
  - EYE DISCHARGE [None]
  - EYE IRRITATION [None]
